FAERS Safety Report 8797178 (Version 1)
Quarter: 2012Q4

REPORT INFORMATION
  Report Type: 
  Country: CA (occurrence: CA)
  Receive Date: 20120919
  Receipt Date: 20120919
  Transmission Date: 20130627
  Serious: Yes (Other)
  Sender: FDA-Public Use
  Company Number: CA-BAYER-2012-094602

PATIENT
  Age: 47 Year
  Sex: Female
  Weight: 64 kg

DRUGS (1)
  1. MIRENA [Suspect]
     Dosage: 20 mcg/24hr, CONT
     Route: 015

REACTIONS (20)
  - Alopecia [Recovering/Resolving]
  - Chemical poisoning [Recovering/Resolving]
  - Chest pain [Recovering/Resolving]
  - Chills [Recovering/Resolving]
  - Depression [Recovering/Resolving]
  - Dry skin [Recovering/Resolving]
  - Dyspepsia [Recovering/Resolving]
  - Erythema [Recovering/Resolving]
  - Feeling cold [Recovering/Resolving]
  - Gastrointestinal tract irritation [Recovering/Resolving]
  - Hyperaesthesia [Recovering/Resolving]
  - Loss of libido [None]
  - Migraine [Recovering/Resolving]
  - Nervousness [Recovering/Resolving]
  - Pain in jaw [Recovering/Resolving]
  - Palpitations [Recovering/Resolving]
  - Reaction to preservatives [Recovering/Resolving]
  - Skin wrinkling [Recovering/Resolving]
  - Tension headache [Recovering/Resolving]
  - Weight increased [Recovering/Resolving]
